FAERS Safety Report 8727088 (Version 2)
Quarter: 2012Q4

REPORT INFORMATION
  Report Type: 
  Country: DE (occurrence: DE)
  Receive Date: 20120816
  Receipt Date: 20120904
  Transmission Date: 20130627
  Serious: Yes (Other)
  Sender: FDA-Public Use
  Company Number: DE-ROCHE-1100982

PATIENT
  Sex: Male

DRUGS (2)
  1. CELLCEPT [Suspect]
     Indication: HEART TRANSPLANT
  2. PROGRAF [Suspect]
     Indication: HEART TRANSPLANT

REACTIONS (3)
  - Transplant rejection [Unknown]
  - Pancreatitis [Unknown]
  - Sepsis [Unknown]
